FAERS Safety Report 22242301 (Version 7)
Quarter: 2023Q4

REPORT INFORMATION
  Report Type: Report from Study
  Country: AU (occurrence: None)
  Receive Date: 20230422
  Receipt Date: 20231005
  Transmission Date: 20240110
  Serious: Yes (Hospitalization)
  Sender: FDA-Public Use
  Company Number: AU-ROCHE-3320619

PATIENT
  Age: 62 Year
  Sex: Male
  Weight: 93 kg

DRUGS (12)
  1. GLOFITAMAB [Suspect]
     Active Substance: GLOFITAMAB
     Indication: Diffuse large B-cell lymphoma
     Dosage: RECENT DOSES RECEIVED ON 16/MAR/2023 (10 MG)?RECENT DOSES RECEIVED ON 01/JUN/2023 (30 MG)
     Route: 042
     Dates: start: 20230309
  2. RITUXIMAB [Suspect]
     Active Substance: RITUXIMAB
     Indication: Diffuse large B-cell lymphoma
     Dosage: ON 23/MAR/2023 AND 25/MAY/2023, MOST RECENT DOSE OF RITUXIMAB PRIOR TO SAE/AESI
     Route: 041
     Dates: start: 20230207
  3. CYCLOPHOSPHAMIDE [Suspect]
     Active Substance: CYCLOPHOSPHAMIDE
     Indication: Diffuse large B-cell lymphoma
     Dosage: ON 23/MAR/2023 AND 25/MAY/2023, MOST RECENT DOSE OF CYCLOPHOSPHAMIDE PRIOR TO SAE/AESI
     Route: 042
     Dates: start: 20230207
  4. DOXORUBICIN [Suspect]
     Active Substance: DOXORUBICIN
     Indication: Diffuse large B-cell lymphoma
     Dosage: ON 23/MAR/2023 AND 25/MAY/2023, MOST RECENT DOSE OF DOXORUBICIN PRIOR TO SAE/AESI
     Route: 042
     Dates: start: 20230207
  5. VINCRISTINE [Suspect]
     Active Substance: VINCRISTINE
     Indication: Diffuse large B-cell lymphoma
     Dosage: ON 23/MAR/2023 AND 25/MAY/2023, MOST RECENT DOSE OF VINCRISTINE PRIOR TO SAE/AESI
     Route: 042
     Dates: start: 20230207
  6. PREDNISOLONE [Suspect]
     Active Substance: PREDNISOLONE
     Indication: Diffuse large B-cell lymphoma
     Dosage: ON 23/MAR/2023 AND 29/MAY/2023, MOST RECENT DOSE OF PREDNISOLONE PRIOR TO SAE/AESI
     Route: 048
     Dates: start: 20230207
  7. VALACYCLOVIR HYDROCHLORIDE [Concomitant]
     Active Substance: VALACYCLOVIR HYDROCHLORIDE
     Route: 048
     Dates: start: 20230302
  8. SULFAMETHOXAZOLE\TRIMETHOPRIM [Concomitant]
     Active Substance: SULFAMETHOXAZOLE\TRIMETHOPRIM
     Dosage: 800/160 MG
     Route: 048
     Dates: start: 20230207
  9. SULFAMETHOXAZOLE\TRIMETHOPRIM [Concomitant]
     Active Substance: SULFAMETHOXAZOLE\TRIMETHOPRIM
     Dosage: 800/160 MG
     Route: 048
     Dates: start: 20230302
  10. PERINDOPRIL [Concomitant]
     Active Substance: PERINDOPRIL
     Indication: Hypertension
     Dosage: 10/5 MG
     Route: 048
     Dates: start: 2012
  11. ALLOPURINOL [Concomitant]
     Active Substance: ALLOPURINOL
     Route: 048
     Dates: start: 20230126
  12. PROCHLORPERAZINE [Concomitant]
     Active Substance: PROCHLORPERAZINE
     Indication: Vertigo
     Route: 048
     Dates: start: 2015

REACTIONS (3)
  - COVID-19 [Recovered/Resolved]
  - Pneumonia [Recovered/Resolved]
  - Acute myocardial infarction [Recovering/Resolving]

NARRATIVE: CASE EVENT DATE: 20230328
